FAERS Safety Report 14385614 (Version 1)
Quarter: 2018Q1

REPORT INFORMATION
  Report Type: Spontaneous
  Country: US (occurrence: US)
  Receive Date: 20180115
  Receipt Date: 20180115
  Transmission Date: 20180509
  Serious: Yes (Other)
  Sender: FDA-Public Use
  Company Number: US-SA-2017SA004958

PATIENT
  Age: 54 Year
  Sex: Female
  Weight: 95.25 kg

DRUGS (12)
  1. TAXOTERE [Suspect]
     Active Substance: DOCETAXEL
     Indication: BREAST CANCER FEMALE
     Route: 051
     Dates: start: 201110, end: 201110
  2. ADRIAMYCIN [Concomitant]
     Active Substance: DOXORUBICIN HYDROCHLORIDE
  3. TAXOTERE [Suspect]
     Active Substance: DOCETAXEL
     Indication: BREAST CANCER FEMALE
     Route: 051
     Dates: start: 201105, end: 201105
  4. GABAPENTIN. [Concomitant]
     Active Substance: GABAPENTIN
  5. MAG-OX [Concomitant]
     Active Substance: MAGNESIUM OXIDE
  6. OMEPRAZOLE. [Concomitant]
     Active Substance: OMEPRAZOLE
  7. TAXOTERE [Suspect]
     Active Substance: DOCETAXEL
     Indication: THYROID CANCER
     Route: 051
     Dates: start: 201105, end: 201105
  8. TAXOTERE [Suspect]
     Active Substance: DOCETAXEL
     Indication: THYROID CANCER
     Route: 051
     Dates: start: 201110, end: 201110
  9. HYDROCODONE [Concomitant]
     Active Substance: HYDROCODONE
  10. LISINOPRIL. [Concomitant]
     Active Substance: LISINOPRIL
  11. BUPROPION. [Concomitant]
     Active Substance: BUPROPION
  12. BULLFROG WATER ARMOR INSTA COOL [Concomitant]

REACTIONS (6)
  - Alopecia [Not Recovered/Not Resolved]
  - Anxiety [Unknown]
  - Impaired quality of life [Unknown]
  - Pain [Unknown]
  - Psychological trauma [Unknown]
  - Emotional distress [Unknown]

NARRATIVE: CASE EVENT DATE: 201105
